FAERS Safety Report 8173540-X (Version None)
Quarter: 2012Q1

REPORT INFORMATION
  Report Type: 
  Country: None (occurrence: None)
  Receive Date: 20120229
  Receipt Date: 20120221
  Transmission Date: 20120608
  Serious: No
  Sender: FDA-Public Use
  Company Number: US-B.I. PHARMACEUTICALS,INC./RIDGEFIELD-2012-BP-03431BP

PATIENT
  Sex: Male

DRUGS (26)
  1. TESTOSTERONE ENANTHATE [Concomitant]
     Indication: STEROID THERAPY
     Route: 030
  2. ADCIRCA [Concomitant]
     Indication: PULMONARY HYPERTENSION
     Dosage: 20 MG
     Route: 048
  3. ALLOPURINOL [Concomitant]
     Indication: GOUT
     Dosage: 300 MG
     Route: 048
  4. CRESTOR [Concomitant]
     Indication: BLOOD CHOLESTEROL INCREASED
     Dosage: 20 MG
     Route: 048
  5. PREZISTA [Concomitant]
     Indication: HIV TEST POSITIVE
     Dosage: 800 MG
     Route: 048
  6. METOLAZONE [Concomitant]
     Indication: DIURETIC THERAPY
     Dosage: 2.5 MG
     Route: 048
  7. DULERA ORAL INHALATION [Concomitant]
     Indication: CHRONIC OBSTRUCTIVE PULMONARY DISEASE
     Dosage: 18 MCG
     Route: 055
  8. FUROSEMIDE [Concomitant]
     Indication: DIURETIC THERAPY
     Dosage: 80 MG
     Route: 048
  9. OXYGEN [Concomitant]
     Indication: CHRONIC OBSTRUCTIVE PULMONARY DISEASE
     Route: 055
  10. ASTEPRO [Concomitant]
     Indication: SEASONAL ALLERGY
     Dosage: 274 MCG
     Route: 055
  11. XANAX [Concomitant]
     Indication: ANXIETY
     Route: 048
  12. NORVIR [Concomitant]
     Indication: HIV TEST POSITIVE
     Dosage: 100 MG
     Route: 048
  13. VALTREX [Concomitant]
     Indication: HIV TEST POSITIVE
     Dosage: 800 MG
     Route: 048
  14. COREG [Concomitant]
     Indication: ATRIAL FIBRILLATION
     Dosage: 12.5 MG
     Route: 048
  15. FOLIC ACID [Concomitant]
     Indication: SUPPLEMENTATION THERAPY
     Dosage: 1 MG
     Route: 048
  16. SPIRIVA [Concomitant]
     Indication: CHRONIC OBSTRUCTIVE PULMONARY DISEASE
     Dosage: 18 MCG
     Route: 055
  17. PRADAXA [Suspect]
     Indication: ATRIAL FIBRILLATION
     Dosage: 300 MG
     Route: 048
     Dates: start: 20101201
  18. ISENTRESS [Concomitant]
     Indication: HIV TEST POSITIVE
     Dosage: 800 MG
     Route: 048
  19. PREDNISONE [Concomitant]
     Indication: CHRONIC OBSTRUCTIVE PULMONARY DISEASE
     Route: 048
  20. LETAIRIS [Concomitant]
     Indication: PULMONARY HYPERTENSION
     Dosage: 5 MG
     Route: 048
  21. ZEGERID [Concomitant]
     Indication: DYSPEPSIA
     Dosage: 40 MG
     Route: 048
  22. SINGULAIR [Concomitant]
     Indication: SEASONAL ALLERGY
     Dosage: 10 MCG
     Route: 048
  23. NANDROLONE DECANOATE [Concomitant]
     Indication: STEROID THERAPY
     Route: 030
  24. RESTORIL [Concomitant]
     Indication: INSOMNIA
     Dosage: 30 MG
     Route: 048
  25. SPIRONOLACTONE [Concomitant]
     Indication: DIURETIC THERAPY
     Dosage: 50 MG
     Route: 048
  26. CYMBALTA [Concomitant]
     Indication: DEPRESSION
     Dosage: 30 MG
     Route: 048

REACTIONS (2)
  - LIPODYSTROPHY ACQUIRED [None]
  - FLUID RETENTION [None]
